FAERS Safety Report 10128424 (Version 4)
Quarter: 2014Q2

REPORT INFORMATION
  Report Type: Report from Study
  Country: US (occurrence: US)
  Receive Date: 20140428
  Receipt Date: 20140605
  Transmission Date: 20141212
  Serious: Yes (Hospitalization)
  Sender: FDA-Public Use
  Company Number: US-BRISTOL-MYERS SQUIBB COMPANY-20623096

PATIENT
  Age: 22 Year
  Sex: Male
  Weight: 64.9 kg

DRUGS (1)
  1. IPILIMUMAB [Suspect]
     Indication: HODGKIN^S DISEASE
     Dosage: 10MG/KG,OVER90MIN ON DAY1,WKI,WK4,WK7+WK10,LST DOSE:3MAR14,MAINTENANCE: OVER 90MIN Q12 WKS?650MG
     Route: 042
     Dates: start: 20131230

REACTIONS (4)
  - Hypothermia [Recovering/Resolving]
  - Pneumonia staphylococcal [Recovered/Resolved with Sequelae]
  - Endocrine disorder [Recovering/Resolving]
  - Anaemia [Recovering/Resolving]
